FAERS Safety Report 24708296 (Version 1)
Quarter: 2024Q4

REPORT INFORMATION
  Report Type: Report from Study
  Country: US (occurrence: US)
  Receive Date: 20241207
  Receipt Date: 20241207
  Transmission Date: 20250115
  Serious: Yes (Death)
  Sender: ABBVIE
  Company Number: US-ABBVIE-6035719

PATIENT
  Age: 52 Year
  Sex: Male

DRUGS (2)
  1. DUOPA [Suspect]
     Active Substance: CARBIDOPA\LEVODOPA
     Indication: Parkinson^s disease
     Dosage: STRENGTH- 4.63-20MG/?MORNING DOSE: 14.9ML, CONTINUOUS DOSE: 3.2ML PER HOUR, EXTRA DOSE: 2ML
     Route: 050
     Dates: start: 202101
  2. DUOPA [Suspect]
     Active Substance: CARBIDOPA\LEVODOPA

REACTIONS (1)
  - Parkinson^s disease [Fatal]
